FAERS Safety Report 12849148 (Version 2)
Quarter: 2017Q1

REPORT INFORMATION
  Report Type: Spontaneous
  Country: JP (occurrence: JP)
  Receive Date: 20161014
  Receipt Date: 20170113
  Transmission Date: 20170428
  Serious: Yes (Other)
  Sender: FDA-Public Use
  Company Number: JP-PFIZER INC-2016465226

PATIENT
  Age: 71 Year
  Sex: Male

DRUGS (2)
  1. AXITINIB [Suspect]
     Active Substance: AXITINIB
     Indication: RENAL CANCER METASTATIC
     Dosage: 10 MG, DAILY
     Route: 048
  2. AXITINIB [Suspect]
     Active Substance: AXITINIB
     Dosage: 12 MG, DAILY

REACTIONS (2)
  - Pneumatosis intestinalis [Recovering/Resolving]
  - Cholecystitis acute [Recovering/Resolving]
